FAERS Safety Report 6705428-2 (Version None)
Quarter: 2010Q2

REPORT INFORMATION
  Report Type: 
  Country: None (occurrence: None)
  Receive Date: 20100503
  Receipt Date: 20100426
  Transmission Date: 20101027
  Serious: No
  Sender: FDA-Public Use
  Company Number: US-BIOGENIDEC-2010BI010722

PATIENT
  Age: 31 Year
  Sex: Female

DRUGS (2)
  1. TYSABRI [Suspect]
     Indication: MULTIPLE SCLEROSIS
     Route: 042
     Dates: start: 20080607, end: 20091017
  2. TYSABRI [Suspect]
     Route: 042
     Dates: start: 20100422

REACTIONS (7)
  - ANXIETY [None]
  - BALANCE DISORDER [None]
  - COGNITIVE DISORDER [None]
  - EYE MOVEMENT DISORDER [None]
  - FATIGUE [None]
  - STRESS [None]
  - VISUAL IMPAIRMENT [None]
